FAERS Safety Report 18252361 (Version 1)
Quarter: 2020Q3

REPORT INFORMATION
  Report Type: Spontaneous
  Country: US (occurrence: US)
  Receive Date: 20200909
  Receipt Date: 20200909
  Transmission Date: 20201103
  Serious: Yes (Hospitalization)
  Sender: FDA-Public Use
  Company Number: None

PATIENT
  Age: 66 Year
  Sex: Female

DRUGS (17)
  1. ALLOPURINOL. [Concomitant]
     Active Substance: ALLOPURINOL
  2. COLCHICINE. [Concomitant]
     Active Substance: COLCHICINE
  3. CLEARLAX [Concomitant]
     Active Substance: POLYETHYLENE GLYCOL 3350
  4. DOK [Concomitant]
     Active Substance: DOCUSATE SODIUM
  5. MS CONTIN [Concomitant]
     Active Substance: MORPHINE SULFATE
  6. FAMOTIDINE. [Concomitant]
     Active Substance: FAMOTIDINE
  7. ALBUTEROL. [Concomitant]
     Active Substance: ALBUTEROL
  8. KLOR?CON [Concomitant]
     Active Substance: POTASSIUM CHLORIDE
  9. METOLAZONE. [Concomitant]
     Active Substance: METOLAZONE
  10. SENNA LAXATIVE [Concomitant]
     Active Substance: SENNOSIDES
  11. AMBRISENTAN 10MG TABLETS 30/BO: 10MG [Suspect]
     Active Substance: AMBRISENTAN
     Indication: PULMONARY ARTERIAL HYPERTENSION
     Route: 048
     Dates: start: 201703
  12. SILDENAFIL. [Concomitant]
     Active Substance: SILDENAFIL
  13. BUMETANIDE. [Concomitant]
     Active Substance: BUMETANIDE
  14. ZOFRAN [Concomitant]
     Active Substance: ONDANSETRON HYDROCHLORIDE
  15. UPTRAVI [Concomitant]
     Active Substance: SELEXIPAG
  16. NORCO [Concomitant]
     Active Substance: ACETAMINOPHEN\HYDROCODONE BITARTRATE
  17. SPIRONOLACTONE. [Concomitant]
     Active Substance: SPIRONOLACTONE

REACTIONS (4)
  - Fluid overload [None]
  - Asthenia [None]
  - Pulmonary hypertension [None]
  - Dyspnoea [None]

NARRATIVE: CASE EVENT DATE: 20200902
